FAERS Safety Report 12081060 (Version 1)
Quarter: 2016Q1

REPORT INFORMATION
  Report Type: Spontaneous
  Country: FI (occurrence: FI)
  Receive Date: 20160216
  Receipt Date: 20160216
  Transmission Date: 20160526
  Serious: Yes (Other)
  Sender: FDA-Public Use
  Company Number: FI-PFIZER INC-2016068289

PATIENT
  Age: 12 Year
  Sex: Female
  Weight: 45 kg

DRUGS (1)
  1. ZITHROMAX [Suspect]
     Active Substance: AZITHROMYCIN DIHYDRATE
     Indication: EYE INFECTION
     Dosage: 500 MG, 1X/DAY
     Route: 048
     Dates: start: 20160203

REACTIONS (8)
  - Malaise [Recovered/Resolved]
  - Skin tightness [Recovered/Resolved]
  - Dry mouth [Recovered/Resolved]
  - Mydriasis [Recovered/Resolved]
  - Chills [Recovered/Resolved]
  - Hallucination [Recovered/Resolved]
  - Feeling abnormal [Recovered/Resolved]
  - Anxiety [Recovered/Resolved]

NARRATIVE: CASE EVENT DATE: 20160203
